FAERS Safety Report 5709656-4 (Version None)
Quarter: 2008Q2

REPORT INFORMATION
  Report Type: 
  Country: None (occurrence: None)
  Receive Date: 20080418
  Receipt Date: 20080407
  Transmission Date: 20081010
  Serious: Yes (Hospitalization)
  Sender: FDA-Public Use
  Company Number: B0517131A

PATIENT
  Age: 10 Year
  Sex: Male

DRUGS (3)
  1. TOPOTECAN [Suspect]
     Indication: NEUROBLASTOMA
     Route: 042
     Dates: start: 20070821
  2. VINCRISTINE [Suspect]
     Indication: NEUROBLASTOMA
     Route: 042
     Dates: start: 20070821
  3. DOXORUBICIN HCL [Suspect]
     Indication: NEUROBLASTOMA
     Route: 042
     Dates: start: 20070821

REACTIONS (1)
  - FEBRILE BONE MARROW APLASIA [None]
